FAERS Safety Report 24449483 (Version 3)
Quarter: 2024Q4

REPORT INFORMATION
  Report Type: Report from Study
  Country: CA (occurrence: CA)
  Receive Date: 20241017
  Receipt Date: 20241225
  Transmission Date: 20250115
  Serious: Yes (Other)
  Sender: ROCHE
  Company Number: CA-002147023-NVSC2024CA200700

PATIENT
  Age: 51 Year
  Sex: Male

DRUGS (2)
  1. XOLAIR [Suspect]
     Active Substance: OMALIZUMAB
     Indication: Chronic spontaneous urticaria
     Route: 050
     Dates: start: 20240610
  2. XOLAIR [Suspect]
     Active Substance: OMALIZUMAB
     Route: 050
     Dates: start: 20240610

REACTIONS (4)
  - Pruritus [Unknown]
  - Urticaria [Unknown]
  - Anaphylactic reaction [Unknown]
  - Off label use [Unknown]
